FAERS Safety Report 6312617-8 (Version None)
Quarter: 2009Q3

REPORT INFORMATION
  Report Type: 
  Country: None (occurrence: None)
  Receive Date: 20090813
  Receipt Date: 20090803
  Transmission Date: 20100115
  Serious: Yes (Other)
  Sender: FDA-Public Use
  Company Number: 2008AL008828

PATIENT
  Age: 76 Year
  Sex: Female

DRUGS (17)
  1. DIGOXIN [Suspect]
     Dosage: 0.125MG, DAILY, PO
     Route: 048
  2. PROPOXYPHENE NAPSYLATE AND ACETAMINOPHEN [Concomitant]
  3. PREVACID [Concomitant]
  4. ALPRAZOLAM [Concomitant]
  5. PROTONIX [Concomitant]
  6. MECLIZINE [Concomitant]
  7. HYDROCODONE [Concomitant]
  8. PROMETHAZINE [Concomitant]
  9. ZITHROMAX [Concomitant]
  10. PACERONE [Concomitant]
  11. AMIODARONE [Concomitant]
  12. WARFARIN [Concomitant]
  13. VICODIN [Concomitant]
  14. NAPROXEN [Concomitant]
  15. IBUPROFEN [Concomitant]
  16. PANTOPRAZOLE SODIUM [Concomitant]
  17. PENICILLIN [Concomitant]

REACTIONS (3)
  - CHEST PAIN [None]
  - DYSPNOEA [None]
  - INJURY [None]
